FAERS Safety Report 22606611 (Version 3)
Quarter: 2025Q2

REPORT INFORMATION
  Report Type: Spontaneous
  Country: GB (occurrence: GB)
  Receive Date: 20230615
  Receipt Date: 20250409
  Transmission Date: 20250717
  Serious: Yes (Death, Other)
  Sender: MYLAN
  Company Number: GB-MYLANLABS-2023M1062956

PATIENT
  Sex: Female

DRUGS (6)
  1. CLOZARIL [Suspect]
     Active Substance: CLOZAPINE
     Indication: Schizophrenia
  2. CLOZARIL [Suspect]
     Active Substance: CLOZAPINE
     Indication: Bipolar disorder
     Dosage: 200 MILLIGRAM, QD
     Dates: start: 20230606, end: 20230611
  3. LITHIUM [Concomitant]
     Active Substance: LITHIUM
     Indication: Bipolar disorder
     Dosage: 200 MILLIGRAM, QD
     Dates: start: 20230314, end: 20230611
  4. LAMOTRIGINE [Concomitant]
     Active Substance: LAMOTRIGINE
     Indication: Bipolar disorder
  5. LEVOTHYROXINE [Concomitant]
     Active Substance: LEVOTHYROXINE
     Dosage: 25 MICROGRAM, QD
     Dates: start: 2011, end: 20230611
  6. LORAZEPAM [Concomitant]
     Active Substance: LORAZEPAM

REACTIONS (7)
  - Breast cancer [Fatal]
  - Metastases to lung [Unknown]
  - Metastases to bone [Unknown]
  - Spinal cord compression [Unknown]
  - Haemoglobin decreased [Unknown]
  - Dysphagia [Unknown]
  - Sedation [Unknown]

NARRATIVE: CASE EVENT DATE: 20230101
